FAERS Safety Report 16149578 (Version 1)
Quarter: 2019Q2

REPORT INFORMATION
  Report Type: Spontaneous
  Country: FR (occurrence: FR)
  Receive Date: 20190402
  Receipt Date: 20190402
  Transmission Date: 20190711
  Serious: Yes (Hospitalization)
  Sender: FDA-Public Use
  Company Number: FR-MYLANLABS-2019M1030354

PATIENT
  Age: 82 Year
  Sex: Female
  Weight: 59 kg

DRUGS (6)
  1. CORDARONE [Interacting]
     Active Substance: AMIODARONE HYDROCHLORIDE
     Indication: PALPITATIONS
     Dosage: 200 MILLIGRAM, QD
     Route: 048
     Dates: start: 20110420
  2. KARDEGIC [Concomitant]
     Active Substance: ASPIRIN DL-LYSINE
     Indication: PRODUCT USED FOR UNKNOWN INDICATION
     Dosage: 75 MILLIGRAM, QD
     Route: 048
  3. BISOPROLOL MYLAN [Interacting]
     Active Substance: BISOPROLOL
     Dosage: 7.5 MILLIGRAM, QD
     Route: 048
     Dates: start: 20110530, end: 20110607
  4. NORSET [Concomitant]
     Active Substance: MIRTAZAPINE
     Indication: PRODUCT USED FOR UNKNOWN INDICATION
     Dosage: 2 DOSAGE FORM, QD(15 MG,1 IN 1 D)
     Route: 048
     Dates: start: 2010
  5. BISOPROLOL MYLAN [Suspect]
     Active Substance: BISOPROLOL
     Indication: PALPITATIONS
     Dosage: 5 MILLIGRAM, QD
     Route: 048
     Dates: start: 20110420, end: 20110529
  6. ARICEPT [Interacting]
     Active Substance: DONEPEZIL HYDROCHLORIDE
     Indication: AMNESTIC DISORDER
     Dosage: 10 MILLIGRAM, QD
     Route: 048
     Dates: end: 20110607

REACTIONS (4)
  - Drug interaction [Recovered/Resolved]
  - Sinus bradycardia [Recovered/Resolved]
  - Dysphonia [Unknown]
  - Headache [Unknown]

NARRATIVE: CASE EVENT DATE: 20110606
